FAERS Safety Report 9505949 (Version 1)
Quarter: 2013Q1

REPORT INFORMATION
  Report Type: Spontaneous
  Country: US (occurrence: None)
  Receive Date: 20130305
  Receipt Date: 20130305
  Transmission Date: 20140127
  Serious: No
  Sender: FDA-Public Use
  Company Number: 1000040447

PATIENT
  Age: 55 Year
  Sex: Female

DRUGS (5)
  1. DALIRESP [Suspect]
     Indication: CHRONIC OBSTRUCTIVE PULMONARY DISEASE
     Route: 048
     Dates: start: 201207, end: 2012
  2. SPIRIVA (TIOTROPIUM BROMIDE) (TIOTROPIUM BROMIDE) [Concomitant]
  3. SYMBICORT (BUDESONIDE W/FORMOTENOL FUMARATE) (BUDESONIDE W/FORMOTEROL FUMARATE) [Concomitant]
  4. ALBUTEROL/IPRATROPIUM (ALBUTEROL/IPRATROPIUM) (ALBUTEROL/IPRATROPIUM) [Concomitant]
  5. CITALOPRAM (CITALOPRAM HYDROBROMIDE) (CITALOPRAM HYDROBROMIDE) [Concomitant]

REACTIONS (3)
  - Tremor [None]
  - Nausea [None]
  - Vomiting [None]
